FAERS Safety Report 10976855 (Version 1)
Quarter: 2015Q2

REPORT INFORMATION
  Report Type: Spontaneous
  Country: BR (occurrence: BR)
  Receive Date: 20150401
  Receipt Date: 20150401
  Transmission Date: 20150821
  Serious: Yes (Other)
  Sender: FDA-Public Use
  Company Number: BR-PFIZER INC-2015109077

PATIENT
  Age: 72 Year
  Sex: Male
  Weight: 71 kg

DRUGS (2)
  1. CELEBRA [Suspect]
     Active Substance: CELECOXIB
     Indication: PAIN
     Dosage: 200 MG, 12/12 HRS
     Dates: start: 20150324
  2. DORMONID [Suspect]
     Active Substance: MIDAZOLAM MALEATE

REACTIONS (3)
  - Blood pressure increased [Recovering/Resolving]
  - Amnesia [Recovering/Resolving]
  - Loss of consciousness [Recovering/Resolving]

NARRATIVE: CASE EVENT DATE: 20150324
